FAERS Safety Report 7611762-4 (Version None)
Quarter: 2011Q3

REPORT INFORMATION
  Report Type: 
  Country: None (occurrence: None)
  Receive Date: 20110715
  Receipt Date: 20110705
  Transmission Date: 20111222
  Serious: Yes (Hospitalization)
  Sender: FDA-Public Use
  Company Number: RU-SANOFI-AVENTIS-2011SA043714

PATIENT
  Age: 74 Year
  Sex: Male
  Weight: 73 kg

DRUGS (6)
  1. SPIRONOLACTONE [Concomitant]
  2. DRONEDARONE HCL [Suspect]
     Indication: ATRIAL FIBRILLATION
     Route: 048
     Dates: start: 20110322, end: 20110708
  3. WARFARIN SODIUM [Concomitant]
  4. ENALAPRIL MALEATE [Concomitant]
  5. FUROSEMIDE [Concomitant]
  6. ENALAPRIL MALEATE [Concomitant]
     Dates: start: 20110323

REACTIONS (6)
  - ISCHAEMIC STROKE [None]
  - HAEMORRHAGIC TRANSFORMATION STROKE [None]
  - INTERNATIONAL NORMALISED RATIO DECREASED [None]
  - ELECTROCARDIOGRAM QT PROLONGED [None]
  - ALANINE AMINOTRANSFERASE INCREASED [None]
  - ASPARTATE AMINOTRANSFERASE INCREASED [None]
